FAERS Safety Report 20176110 (Version 1)
Quarter: 2021Q4

REPORT INFORMATION
  Report Type: Spontaneous
  Country: US (occurrence: None)
  Receive Date: 20211213
  Receipt Date: 20211213
  Transmission Date: 20220303
  Serious: Yes (Hospitalization)
  Sender: FDA-Public Use
  Company Number: None

PATIENT
  Age: 60 Year
  Sex: Female

DRUGS (1)
  1. HUMIRA [Suspect]
     Active Substance: ADALIMUMAB
     Indication: Psoriatic arthropathy
     Dosage: OTHER FREQUENCY : Q2WKS;?
     Route: 058
     Dates: start: 20210908

REACTIONS (3)
  - Pituitary tumour [None]
  - Pruritus [None]
  - Skin discolouration [None]

NARRATIVE: CASE EVENT DATE: 20211209
